FAERS Safety Report 9057292 (Version 2)
Quarter: 2013Q4

REPORT INFORMATION
  Report Type: Spontaneous
  Country: GB (occurrence: GB)
  Receive Date: 20130131
  Receipt Date: 20131015
  Transmission Date: 20140711
  Serious: Yes (Life-Threatening, Hospitalization)
  Sender: FDA-Public Use
  Company Number: GB-GLAXOSMITHKLINE-B0861499A

PATIENT
  Age: 11 Year
  Sex: Male
  Weight: 43.7 kg

DRUGS (12)
  1. IBUPROFEN [Suspect]
     Indication: BODY TEMPERATURE INCREASED
     Route: 048
     Dates: start: 20120927, end: 20120927
  2. ACYCLOVIR [Suspect]
  3. DICLOFENAC [Suspect]
     Route: 042
  4. NUROFEN [Suspect]
     Indication: OROPHARYNGEAL PAIN
     Dosage: 10ML PER DAY
     Route: 048
     Dates: start: 20120920, end: 20120920
  5. NUROFEN [Suspect]
     Indication: VARICELLA
     Dosage: 20ML PER DAY
     Route: 048
     Dates: start: 20120927, end: 20120927
  6. CALPOL [Concomitant]
  7. CELLUVISC [Concomitant]
  8. LACRI-LUBE [Concomitant]
  9. CETRIZIN [Concomitant]
  10. GABAPENTIN [Concomitant]
  11. PREDNISOLONE [Concomitant]
  12. AUGMENTIN [Concomitant]

REACTIONS (7)
  - Toxic epidermal necrolysis [Recovered/Resolved with Sequelae]
  - Medication error [Unknown]
  - Oropharyngeal pain [Unknown]
  - Rash [Unknown]
  - Eye disorder [Unknown]
  - Penile blister [Unknown]
  - Pain [Unknown]
